FAERS Safety Report 10504980 (Version 1)
Quarter: 2014Q4

REPORT INFORMATION
  Report Type: Report from Study
  Country: US (occurrence: US)
  Receive Date: 20141008
  Receipt Date: 20141008
  Transmission Date: 20150528
  Serious: No
  Sender: FDA-Public Use
  Company Number: US-ALEXION-A201002361

PATIENT
  Sex: Female

DRUGS (1)
  1. SOLIRIS [Suspect]
     Active Substance: ECULIZUMAB
     Indication: PAROXYSMAL NOCTURNAL HAEMOGLOBINURIA
     Dosage: UNK

REACTIONS (6)
  - Thyroid disorder [Unknown]
  - Chromaturia [Unknown]
  - Tooth disorder [Unknown]
  - Breast disorder [Unknown]
  - Depression [Unknown]
  - Rash [Unknown]
